FAERS Safety Report 9883847 (Version 2)
Quarter: 2014Q2

REPORT INFORMATION
  Report Type: Report from Study
  Country: US (occurrence: US)
  Receive Date: 20140210
  Receipt Date: 20140603
  Transmission Date: 20141212
  Serious: Yes (Death, Other)
  Sender: FDA-Public Use
  Company Number: US-BEH-2014040434

PATIENT
  Age: 57 Year
  Sex: Male

DRUGS (8)
  1. BERINERT P [Suspect]
     Indication: HEREDITARY ANGIOEDEMA
     Dosage: 4 ML/MIN; FIRST RECEIVED 01APR2011 AT 1030 HOURS
     Route: 042
     Dates: start: 20130527, end: 20130527
  2. BYSTOLIC [Concomitant]
  3. CINRYZE [Concomitant]
  4. FLONASE [Concomitant]
     Dosage: 50 MCG; 2 SPRAYS EACH NOSTRIL
     Route: 045
  5. HYTRIN [Concomitant]
     Route: 048
  6. TESTOSTERONE [Concomitant]
  7. FLEXERIL [Concomitant]
     Dosage: DAILY
     Route: 048
  8. PERCODAN [Concomitant]
     Dosage: 4.8355 MG/325 Q 6 HOURS PRN
     Route: 048

REACTIONS (4)
  - Cardiac arrest [Fatal]
  - Myocardial infarction [Fatal]
  - Angina pectoris [Fatal]
  - Loss of consciousness [Fatal]
